FAERS Safety Report 4778558-2 (Version None)
Quarter: 2005Q3

REPORT INFORMATION
  Report Type: 
  Country: None (occurrence: None)
  Receive Date: 20050926
  Receipt Date: 20050609
  Transmission Date: 20060218
  Serious: Yes (Death, Hospitalization)
  Sender: FDA-Public Use
  Company Number: US-MERCK-0506USA01466

PATIENT
  Age: 36 Year
  Sex: Male
  Weight: 97 kg

DRUGS (3)
  1. VIOXX [Suspect]
     Indication: INTERVERTEBRAL DISC DEGENERATION
     Route: 048
     Dates: start: 20020301, end: 20031014
  2. VIOXX [Suspect]
     Indication: NECK PAIN
     Route: 048
     Dates: start: 20020301, end: 20031014
  3. DIAZEPAM [Concomitant]
     Route: 065

REACTIONS (17)
  - ABDOMINAL DISTENSION [None]
  - CARDIAC ARREST [None]
  - CARDIO-RESPIRATORY ARREST [None]
  - CHEST PAIN [None]
  - CORNEAL REFLEX DECREASED [None]
  - CORONARY ARTERY ATHEROSCLEROSIS [None]
  - CORONARY ARTERY OCCLUSION [None]
  - DYSPHAGIA [None]
  - HYPERTENSIVE HEART DISEASE [None]
  - LOSS OF CONSCIOUSNESS [None]
  - MYOCARDIAL INFARCTION [None]
  - NECK MASS [None]
  - PUPIL FIXED [None]
  - SLEEP DISORDER [None]
  - TINNITUS [None]
  - VENTRICULAR FIBRILLATION [None]
  - VOMITING [None]
